FAERS Safety Report 5670349-3 (Version None)
Quarter: 2008Q1

REPORT INFORMATION
  Report Type: 
  Country: None (occurrence: None)
  Receive Date: 20080313
  Receipt Date: 20080228
  Transmission Date: 20080703
  Serious: Yes (Hospitalization)
  Sender: FDA-Public Use
  Company Number: 2008US000633

PATIENT
  Age: 53 Year
  Sex: Male
  Weight: 145.6 kg

DRUGS (4)
  1. AMEVIVE [Suspect]
     Indication: PSORIASIS
     Dosage: 15 MG, WEEKLY, INTRAMUSCULAR
     Route: 030
     Dates: start: 20031114
  2. LOVASTATIN [Concomitant]
  3. EFFEXOR [Concomitant]
  4. ENBREL [Concomitant]

REACTIONS (2)
  - OBESITY [None]
  - PROCEDURAL PAIN [None]
